FAERS Safety Report 17036283 (Version 2)
Quarter: 2020Q2

REPORT INFORMATION
  Report Type: Report from Study
  Country: GB (occurrence: GB)
  Receive Date: 20191115
  Receipt Date: 20200414
  Transmission Date: 20200713
  Serious: Yes (Hospitalization)
  Sender: FDA-Public Use
  Company Number: NVSC2019GB035403

PATIENT
  Sex: Female

DRUGS (1)
  1. GILENYA [Suspect]
     Active Substance: FINGOLIMOD HYDROCHLORIDE
     Indication: PRODUCT USED FOR UNKNOWN INDICATION
     Dosage: 0.5 MG, QD
     Route: 048
     Dates: start: 2015

REACTIONS (5)
  - Macular oedema [Unknown]
  - Multiple sclerosis relapse [Not Recovered/Not Resolved]
  - Hemiparesis [Unknown]
  - Blindness [Unknown]
  - Hemiplegia [Unknown]
